FAERS Safety Report 25401657 (Version 1)
Quarter: 2025Q2

REPORT INFORMATION
  Report Type: Report from Study
  Country: JP (occurrence: JP)
  Receive Date: 20250605
  Receipt Date: 20250605
  Transmission Date: 20250716
  Serious: Yes (Disabling, Other)
  Sender: RECORDATI
  Company Number: JP-ORPHANEU-2025003835

PATIENT
  Sex: Male
  Weight: 3 kg

DRUGS (19)
  1. CARBAGLU [Suspect]
     Active Substance: CARGLUMIC ACID
     Indication: Hyperammonaemia
     Dosage: 150 MILLIGRAM, QID (AFTER MEALS - MORNING, NOON, EVENING, BEFORE BEDTIME)
     Dates: start: 20241125, end: 20250109
  2. CARBAGLU [Suspect]
     Active Substance: CARGLUMIC ACID
     Indication: Carbamoyl phosphate synthetase deficiency
     Dosage: 200 MILLIGRAM, TID (AFTER MEALS [MORNING, NOON, EVENING])
     Dates: start: 20250110
  3. CARBAGLU [Suspect]
     Active Substance: CARGLUMIC ACID
     Indication: Off label use
  4. LACTULOSE [Concomitant]
     Active Substance: LACTULOSE
     Indication: Product used for unknown indication
     Dosage: 3 MILLILITER, QD (60 PERCENT)
     Route: 048
     Dates: start: 20241122
  5. BUPHENYL [Concomitant]
     Active Substance: SODIUM PHENYLBUTYRATE
     Indication: Product used for unknown indication
     Dosage: 750 MILLIGRAM DAILY DOSE, TID
     Route: 048
     Dates: start: 20241122, end: 20241128
  6. BUPHENYL [Concomitant]
     Active Substance: SODIUM PHENYLBUTYRATE
     Dosage: 900 MILLIGRAM DAILY DOSE, TID
     Route: 048
     Dates: start: 20241129
  7. MENATETRENONE [Concomitant]
     Active Substance: MENATETRENONE
     Indication: Haemorrhage prophylaxis
     Dosage: 1 MILLILITER, QD (SYRUP)
     Route: 048
     Dates: end: 20250201
  8. TOCOPHEROL ACETATE [Concomitant]
     Active Substance: .ALPHA.-TOCOPHEROL ACETATE
     Indication: Product used for unknown indication
     Dosage: 60 MILLIGRAM, QD
     Route: 048
     Dates: start: 20241122
  9. UBIDECARENONE [Concomitant]
     Active Substance: UBIDECARENONE
     Indication: Product used for unknown indication
     Dosage: 15 MILLIGRAM DAILY DOSE, TID
     Route: 048
     Dates: start: 20241122, end: 20250209
  10. UBIDECARENONE [Concomitant]
     Active Substance: UBIDECARENONE
     Dosage: 20 MILLIGRAM DAILY DOSE, TID
     Route: 048
     Dates: start: 20250210
  11. ARGININE [Concomitant]
     Active Substance: ARGININE
     Indication: Product used for unknown indication
     Dosage: 750 MILLIGRAM, QD (AS INJECTION)
     Dates: start: 20241122, end: 20241206
  12. BIOTIN [Concomitant]
     Active Substance: BIOTIN
     Indication: Product used for unknown indication
     Dosage: 5 MILLIGRAM DAILY DOSE, TID
     Route: 048
     Dates: start: 20241122
  13. LEVOCARNITINE HYDROCHLORIDE [Concomitant]
     Active Substance: LEVOCARNITINE HYDROCHLORIDE
     Indication: Product used for unknown indication
     Dosage: 120 MILLIGRAM, QD (AS INJECTION)
     Dates: start: 20241122, end: 20241222
  14. LEVOCARNITINE HYDROCHLORIDE [Concomitant]
     Active Substance: LEVOCARNITINE HYDROCHLORIDE
     Dosage: 100 MILLIGRAM, QD (AS INJECTION)
     Dates: start: 20241223
  15. CYANOCOBALAMIN [Concomitant]
     Active Substance: CYANOCOBALAMIN
     Indication: Product used for unknown indication
     Dosage: 2 MILLIGRAM, QD (INJECTION)
     Dates: start: 20241122, end: 20241212
  16. PYRIDOXAL [Concomitant]
     Active Substance: PYRIDOXAL
     Indication: Product used for unknown indication
     Dosage: 100 MILLIGRAM, QD (AS INJECTION)
     Dates: start: 20241122, end: 20241212
  17. Bisulase [Concomitant]
     Indication: Product used for unknown indication
     Dosage: 100 MILLIGRAM, QD (AS INJECTION)
     Dates: start: 20241122, end: 20241212
  18. Metabolin [Concomitant]
     Indication: Product used for unknown indication
     Dosage: 100 MILLIGRAM, QD (AS INJECTION)
     Dates: start: 20241122, end: 20241212
  19. ASCORBIC ACID [Concomitant]
     Active Substance: ASCORBIC ACID
     Indication: Product used for unknown indication
     Dosage: 300 MILLIGRAM, QD (AS INJECTION)
     Dates: start: 20241122, end: 20241212

REACTIONS (3)
  - Hepatic function abnormal [Recovered/Resolved]
  - Jugular vein thrombosis [Recovered/Resolved with Sequelae]
  - Off label use [Recovered/Resolved]

NARRATIVE: CASE EVENT DATE: 20241101
